FAERS Safety Report 5951571-5 (Version None)
Quarter: 2008Q4

REPORT INFORMATION
  Report Type: 
  Country: None (occurrence: None)
  Receive Date: 20081113
  Receipt Date: 20081104
  Transmission Date: 20090506
  Serious: Yes (Other)
  Sender: FDA-Public Use
  Company Number: PHHY2008JP25128

PATIENT
  Sex: Female
  Weight: 55 kg

DRUGS (10)
  1. AREDIA [Suspect]
     Indication: METASTASES TO BONE
     Dosage: 30 MG, QMO
     Route: 042
     Dates: start: 20021224, end: 20060101
  2. ZOMETA [Suspect]
     Indication: METASTASES TO BONE
     Dosage: 4 MG, QMO
     Route: 042
     Dates: start: 20060628, end: 20080806
  3. FURTULON [Concomitant]
     Dosage: 800 MG, UNK
     Route: 048
     Dates: start: 20001222
  4. ARIMIDEX [Concomitant]
     Dosage: 2 MG, UNK
     Route: 048
     Dates: start: 20060726
  5. GLAKAY [Concomitant]
     Dosage: 30 MG, UNK
     Route: 065
     Dates: start: 20000101
  6. COLONEL [Concomitant]
     Dosage: 2.4 MG, UNK
     Route: 065
     Dates: start: 20000101
  7. BEZATOL - SLOW RELEASE [Concomitant]
     Dosage: 400 MG, UNK
     Route: 065
     Dates: start: 20000101
  8. KAMAG G [Concomitant]
     Dosage: 2 G, UNK
     Route: 065
     Dates: start: 20000101
  9. CALSLOT [Concomitant]
     Dosage: 20 MG, UNK
     Route: 065
     Dates: start: 20000101
  10. FAMOTIDINE [Concomitant]
     Dosage: 20 MG, UNK
     Route: 065
     Dates: start: 20000101

REACTIONS (4)
  - BONE DISORDER [None]
  - OSTEONECROSIS [None]
  - PAIN [None]
  - TOOTH EXTRACTION [None]
